APPROVED DRUG PRODUCT: SINEMET
Active Ingredient: CARBIDOPA; LEVODOPA
Strength: 25MG;250MG
Dosage Form/Route: TABLET;ORAL
Application: N017555 | Product #002 | TE Code: AB
Applicant: ORGANON LLC A SUB OF ORGANON AND CO
Approved: Approved Prior to Jan 1, 1982 | RLD: Yes | RS: No | Type: RX